FAERS Safety Report 21550375 (Version 2)
Quarter: 2022Q4

REPORT INFORMATION
  Report Type: Spontaneous
  Country: CH (occurrence: CH)
  Receive Date: 20221103
  Receipt Date: 20221213
  Transmission Date: 20230113
  Serious: Yes (Hospitalization)
  Sender: FDA-Public Use
  Company Number: CH-TEVA-2022-CH-2821827

PATIENT
  Age: 70 Year
  Sex: Male

DRUGS (5)
  1. CIPROFLOXACIN [Interacting]
     Active Substance: CIPROFLOXACIN
     Indication: Urosepsis
     Dosage: 1000 MILLIGRAM DAILY; FOR AN ADDITIONAL 4 DAYS
     Route: 048
  2. LISINOPRIL [Interacting]
     Active Substance: LISINOPRIL
     Indication: Hypertension
     Dosage: 5 MILLIGRAM DAILY; 5 MG (1-0-0-0)
     Route: 065
  3. TIZANIDINE [Interacting]
     Active Substance: TIZANIDINE
     Indication: Hemiparesis
     Dosage: (2-1-0-0 CPR/DAY) MODIFIED RELEASE
     Route: 065
  4. TIZANIDINE [Interacting]
     Active Substance: TIZANIDINE
     Route: 065
  5. CEFTRIAXONE [Concomitant]
     Active Substance: CEFTRIAXONE
     Indication: Urosepsis
     Dosage: 2 GRAM DAILY;
     Route: 065

REACTIONS (2)
  - Hypotension [Recovering/Resolving]
  - Drug interaction [Unknown]
